FAERS Safety Report 9671775 (Version 1)
Quarter: 2013Q4

REPORT INFORMATION
  Report Type: Spontaneous
  Country: TW (occurrence: TW)
  Receive Date: 20131106
  Receipt Date: 20131106
  Transmission Date: 20140711
  Serious: Yes (Hospitalization)
  Sender: FDA-Public Use
  Company Number: PHHY2013TW123062

PATIENT
  Age: 27 Year
  Sex: Male

DRUGS (1)
  1. AMPICILLIN [Suspect]
     Indication: ACUTE TONSILLITIS

REACTIONS (6)
  - Basedow^s disease [Unknown]
  - Palpitations [Unknown]
  - Tremor [Unknown]
  - Hyperthyroidism [Unknown]
  - Drug reaction with eosinophilia and systemic symptoms [Recovering/Resolving]
  - Alopecia areata [Unknown]
